FAERS Safety Report 19593872 (Version 2)
Quarter: 2021Q3

REPORT INFORMATION
  Report Type: Spontaneous
  Country: AT (occurrence: AT)
  Receive Date: 20210722
  Receipt Date: 20210820
  Transmission Date: 20211014
  Serious: Yes (Life-Threatening, Hospitalization, Other)
  Sender: FDA-Public Use
  Company Number: AT-ALK-ABELLO A/S-2021AA002966

PATIENT

DRUGS (3)
  1. RYTMONORMA [Concomitant]
  2. ACARIZAX [Suspect]
     Active Substance: DERMATOPHAGOIDES FARINAE\DERMATOPHAGOIDES PTERONYSSINUS
     Indication: MITE ALLERGY
     Dosage: 1 DOSAGE FORM, QD
     Dates: start: 201710, end: 201803
  3. SULTANOL                           /00139501/ [Concomitant]

REACTIONS (3)
  - Squamous cell carcinoma of the tongue [Recovered/Resolved]
  - Tongue disorder [Recovered/Resolved]
  - Hospitalisation [Recovered/Resolved]

NARRATIVE: CASE EVENT DATE: 201803
